FAERS Safety Report 6801060-0 (Version None)
Quarter: 2010Q2

REPORT INFORMATION
  Report Type: 
  Country: None (occurrence: None)
  Receive Date: 20100629
  Receipt Date: 20100621
  Transmission Date: 20101027
  Serious: Yes (Hospitalization)
  Sender: FDA-Public Use
  Company Number: US-ASTRAZENECA-2010SE29002

PATIENT
  Age: 58 Year
  Sex: Female
  Weight: 59 kg

DRUGS (8)
  1. SEROQUEL [Suspect]
     Indication: BIPOLAR DISORDER
     Route: 048
     Dates: end: 20091101
  2. SEROQUEL [Suspect]
     Indication: DEPRESSION
     Route: 048
     Dates: end: 20091101
  3. HYZAAR [Concomitant]
  4. ALPRAZOLAM [Concomitant]
  5. MAXALT [Concomitant]
  6. NADOLOL [Concomitant]
  7. FLUOXETINE [Concomitant]
  8. OXYCOD APAP [Concomitant]

REACTIONS (7)
  - ABASIA [None]
  - DYSARTHRIA [None]
  - LOSS OF CONSCIOUSNESS [None]
  - MEMORY IMPAIRMENT [None]
  - RENAL FAILURE ACUTE [None]
  - RHABDOMYOLYSIS [None]
  - WEIGHT DECREASED [None]
